FAERS Safety Report 5283667-8 (Version None)
Quarter: 2007Q2

REPORT INFORMATION
  Report Type: 
  Country: None (occurrence: None)
  Receive Date: 20070402
  Receipt Date: 20070329
  Transmission Date: 20071010
  Serious: Yes (Hospitalization)
  Sender: FDA-Public Use
  Company Number: DK-BRISTOL-MYERS SQUIBB COMPANY-13732037

PATIENT
  Age: 56 Year
  Sex: Male

DRUGS (2)
  1. BLINDED: APIXABAN [Suspect]
     Indication: CARDIAC FAILURE
     Route: 048
     Dates: start: 20070307
  2. BLINDED: PLACEBO [Suspect]
     Indication: CARDIAC FAILURE

REACTIONS (1)
  - MYOCARDIAL INFARCTION [None]
